FAERS Safety Report 10795111 (Version 1)
Quarter: 2015Q1

REPORT INFORMATION
  Report Type: Report from Study
  Country: BR (occurrence: BR)
  Receive Date: 20150214
  Receipt Date: 20150214
  Transmission Date: 20150721
  Serious: Yes (Hospitalization, Disabling, Other)
  Sender: FDA-Public Use
  Company Number: BR-ABBVIE-14P-020-1273539-00

PATIENT
  Age: 48 Year
  Sex: Female
  Weight: 83 kg

DRUGS (9)
  1. HUMIRA [Suspect]
     Active Substance: ADALIMUMAB
     Indication: CROHN^S DISEASE
     Dosage: LOADING DOSE (WEEK 0)
     Route: 058
     Dates: start: 20110424, end: 20110424
  2. SPIRONOLACTONE. [Concomitant]
     Active Substance: SPIRONOLACTONE
     Indication: BLOOD POTASSIUM DECREASED
     Route: 048
     Dates: start: 201406
  3. CITONEURIN [Concomitant]
     Active Substance: CYANOCOBALAMIN\PYRIDOXINE HYDROCHLORIDE\THIAMINE
     Indication: VITAMIN D DECREASED
     Route: 030
     Dates: start: 2012
  4. AZATHIOPRINE. [Concomitant]
     Active Substance: AZATHIOPRINE
     Indication: CROHN^S DISEASE
     Route: 048
  5. HUMIRA [Suspect]
     Active Substance: ADALIMUMAB
     Route: 058
  6. HUMIRA [Suspect]
     Active Substance: ADALIMUMAB
     Route: 058
     Dates: start: 201501
  7. HUMIRA [Suspect]
     Active Substance: ADALIMUMAB
     Route: 058
  8. HUMIRA [Suspect]
     Active Substance: ADALIMUMAB
     Dosage: WEEK 2
     Route: 058
     Dates: start: 201105, end: 201105
  9. HUMIRA [Suspect]
     Active Substance: ADALIMUMAB
     Route: 058
     Dates: start: 201501

REACTIONS (11)
  - Paralysis [Recovering/Resolving]
  - Diarrhoea [Recovering/Resolving]
  - Blood potassium decreased [Unknown]
  - Cardiac arrest [Recovered/Resolved]
  - Fall [Unknown]
  - Hypocalcaemia [Unknown]
  - Faeces discoloured [Unknown]
  - Renal failure [Recovered/Resolved]
  - Monoplegia [Unknown]
  - Diplegia [Recovered/Resolved]
  - Weight decreased [Unknown]

NARRATIVE: CASE EVENT DATE: 2011
